FAERS Safety Report 12988420 (Version 1)
Quarter: 2016Q4

REPORT INFORMATION
  Report Type: Spontaneous
  Country: ES (occurrence: ES)
  Receive Date: 20161130
  Receipt Date: 20161130
  Transmission Date: 20170207
  Serious: Yes (Other)
  Sender: FDA-Public Use
  Company Number: ES-SA-2016SA211775

PATIENT
  Age: 40 Year
  Sex: Female

DRUGS (4)
  1. LEMTRADA [Suspect]
     Active Substance: ALEMTUZUMAB
     Indication: RELAPSING-REMITTING MULTIPLE SCLEROSIS
     Dosage: 12 MG/D DURANTE 5 DIAS
     Route: 042
     Dates: start: 20160926, end: 20160930
  2. ACYCLOVIR. [Concomitant]
     Active Substance: ACYCLOVIR
     Dosage: 200/12H
  3. BESITRAN [Concomitant]
     Active Substance: SERTRALINE HYDROCHLORIDE
  4. MIRAPEXIN [Concomitant]
     Active Substance: PRAMIPEXOLE
     Dosage: AT NIGHT

REACTIONS (1)
  - Neutropenia [Recovering/Resolving]

NARRATIVE: CASE EVENT DATE: 20161024
